FAERS Safety Report 14524673 (Version 1)
Quarter: 2018Q1

REPORT INFORMATION
  Report Type: Spontaneous
  Country: US (occurrence: US)
  Receive Date: 20180210
  Receipt Date: 20180210
  Transmission Date: 20180509
  Serious: No
  Sender: FDA-Public Use
  Company Number: None

PATIENT
  Sex: Female
  Weight: 87.09 kg

DRUGS (2)
  1. TALTZ [Suspect]
     Active Substance: IXEKIZUMAB
     Indication: PSORIASIS
     Dosage: FREQUENCY - Q4WKS
     Route: 058
     Dates: start: 201712
  2. OTEZLA [Suspect]
     Active Substance: APREMILAST
     Route: 058
     Dates: start: 201603

REACTIONS (2)
  - Condition aggravated [None]
  - Fall [None]
